FAERS Safety Report 17913796 (Version 4)
Quarter: 2020Q3

REPORT INFORMATION
  Report Type: Spontaneous
  Country: CA (occurrence: CA)
  Receive Date: 20200618
  Receipt Date: 20200824
  Transmission Date: 20201103
  Serious: Yes (Hospitalization)
  Sender: FDA-Public Use
  Company Number: CA-ACTELION-A-NJ2020-206149

PATIENT
  Age: 55 Year
  Sex: Female

DRUGS (13)
  1. SPIRONOLACTONE. [Concomitant]
     Active Substance: SPIRONOLACTONE
  2. VITAMIN D3 [Concomitant]
     Active Substance: CHOLECALCIFEROL
  3. RISEDRONATE [Concomitant]
     Active Substance: RISEDRONATE SODIUM
  4. PANTOPRAZOLE [Concomitant]
     Active Substance: PANTOPRAZOLE
  5. SYMBICORT [Concomitant]
     Active Substance: BUDESONIDE\FORMOTEROL FUMARATE DIHYDRATE
  6. LASIX [Concomitant]
     Active Substance: FUROSEMIDE
  7. METOLAZONE. [Concomitant]
     Active Substance: METOLAZONE
  8. CALTRATE [Concomitant]
     Active Substance: CALCIUM CARBONATE
  9. CARIPUL [Suspect]
     Active Substance: EPOPROSTENOL
     Indication: PULMONARY ARTERIAL HYPERTENSION
     Dosage: 30000 NG/ML
     Route: 042
     Dates: start: 20191126
  10. CARIPUL [Suspect]
     Active Substance: EPOPROSTENOL
     Dosage: 15000 NG
     Route: 042
     Dates: start: 20191126
  11. WARFARIN [Concomitant]
     Active Substance: WARFARIN
  12. SPIRIVA [Concomitant]
     Active Substance: TIOTROPIUM BROMIDE MONOHYDRATE
  13. ADEMPAS [Concomitant]
     Active Substance: RIOCIGUAT

REACTIONS (1)
  - Hospitalisation [Recovered/Resolved]

NARRATIVE: CASE EVENT DATE: 20200817
